FAERS Safety Report 8189882-8 (Version None)
Quarter: 2012Q1

REPORT INFORMATION
  Report Type: 
  Country: None (occurrence: None)
  Receive Date: 20120305
  Receipt Date: 20120216
  Transmission Date: 20120608
  Serious: No
  Sender: FDA-Public Use
  Company Number: OPER20120115

PATIENT
  Sex: Male

DRUGS (1)
  1. OPANA [Suspect]
     Indication: PAIN
     Dosage: 40 MG, 2 IN 1 D, ORAL
     Route: 048
     Dates: start: 20090101

REACTIONS (1)
  - DRUG EFFECT DECREASED [None]
